FAERS Safety Report 5775742-6 (Version None)
Quarter: 2008Q2

REPORT INFORMATION
  Report Type: 
  Country: None (occurrence: None)
  Receive Date: 20080601
  Receipt Date: 20080319
  Transmission Date: 20081010
  Serious: No
  Sender: FDA-Public Use
  Company Number: US200803004837

PATIENT
  Age: 69 Year
  Sex: Male
  Weight: 165.5 kg

DRUGS (12)
  1. BYETTA [Suspect]
     Indication: TYPE 2 DIABETES MELLITUS
     Dosage: 5 UG, 2/D, SUBCUTANEOUS : 10 UG, 2/D, SUBCUTANEOUS
     Route: 058
     Dates: start: 20070101, end: 20070101
  2. BYETTA [Suspect]
     Indication: TYPE 2 DIABETES MELLITUS
     Dosage: 5 UG, 2/D, SUBCUTANEOUS : 10 UG, 2/D, SUBCUTANEOUS
     Route: 058
     Dates: start: 20070101
  3. EXENATIDE PEN, DISPOSABLE DEVICE (EXENATIDE PEN) PEN,DISPOSABLE [Concomitant]
  4. HUMALOG [Concomitant]
  5. HUMULIN N [Concomitant]
  6. TRICOR [Concomitant]
  7. SIMVASTATIN [Concomitant]
  8. POTASSIUM CHLORIDE [Concomitant]
  9. BUMEX [Concomitant]
  10. DIOVAN (HYDROCHLOROTHIAZIDE, VALSARTAN) [Concomitant]
  11. MULTIVITAMIN [Concomitant]
  12. IBUPROFEN [Concomitant]

REACTIONS (3)
  - BLOOD PRESSURE DECREASED [None]
  - GENERALISED ERYTHEMA [None]
  - PRURITUS GENERALISED [None]
